FAERS Safety Report 4278882-6 (Version None)
Quarter: 2004Q1

REPORT INFORMATION
  Report Type: 
  Country: None (occurrence: None)
  Receive Date: 20040122
  Receipt Date: 20040119
  Transmission Date: 20041129
  Serious: Yes (Death)
  Sender: FDA-Public Use
  Company Number: 163-20785-03120533

PATIENT
  Age: 79 Year
  Sex: Female

DRUGS (2)
  1. THALOMID [Suspect]
     Indication: MYELODYSPLASTIC SYNDROME
     Dosage: 200 MG, DAILY, ORAL
     Route: 048
     Dates: start: 20030731, end: 20031216
  2. THALOMID [Suspect]
     Indication: REFRACTORY ANAEMIA
     Dosage: 200 MG, DAILY, ORAL
     Route: 048
     Dates: start: 20030731, end: 20031216

REACTIONS (2)
  - RESPIRATORY FAILURE [None]
  - SEPSIS [None]
